FAERS Safety Report 8493222-4 (Version None)
Quarter: 2012Q3

REPORT INFORMATION
  Report Type: 
  Country: None (occurrence: None)
  Receive Date: 20120706
  Receipt Date: 20120629
  Transmission Date: 20120928
  Serious: Yes (Other)
  Sender: FDA-Public Use
  Company Number: PHHY2012JP056600

PATIENT
  Age: 62 Year
  Sex: Male

DRUGS (5)
  1. BASILIXIMAB [Suspect]
     Indication: RENAL TRANSPLANT
  2. CYCLOSPORINE [Suspect]
     Indication: RENAL TRANSPLANT
  3. MYCOPHENOLATE MOFETIL [Suspect]
     Indication: RENAL TRANSPLANT
  4. METHYLPREDNISOLONE [Suspect]
     Indication: RENAL TRANSPLANT
  5. RITUXAN [Suspect]
     Indication: RENAL TRANSPLANT

REACTIONS (3)
  - GLOMERULONEPHRITIS MINIMAL LESION [None]
  - TOXICITY TO VARIOUS AGENTS [None]
  - PROTEINURIA [None]
